FAERS Safety Report 6072420-3 (Version None)
Quarter: 2009Q1

REPORT INFORMATION
  Report Type: 
  Country: None (occurrence: None)
  Receive Date: 20090210
  Receipt Date: 20090210
  Transmission Date: 20090719
  Serious: Yes (Other)
  Sender: FDA-Public Use
  Company Number: US-PFIZER INC-2008041170

PATIENT
  Sex: Female
  Weight: 87.075 kg

DRUGS (14)
  1. LYRICA [Suspect]
     Indication: FIBROMYALGIA
     Dosage: 25 MG, UNK
     Dates: start: 20080401, end: 20080503
  2. LYRICA [Suspect]
     Dosage: 25 MG, UNK
     Dates: start: 20080401, end: 20080101
  3. BUPROPION HCL [Concomitant]
  4. ESTRADIOL [Concomitant]
  5. ESTAZOLAM [Concomitant]
  6. TOPAMAX [Concomitant]
  7. AVANDIA [Concomitant]
  8. PRILOSEC [Concomitant]
  9. CLONAZEPAM [Concomitant]
  10. SEROQUEL [Concomitant]
  11. IBUPROFEN TABLETS [Concomitant]
  12. LORTAB [Concomitant]
     Indication: RHEUMATOID ARTHRITIS
  13. EFFEXOR [Concomitant]
     Dosage: UNK
  14. ALPRAZOLAM [Concomitant]
     Dosage: UNK

REACTIONS (19)
  - ACTIVITIES OF DAILY LIVING IMPAIRED [None]
  - BALANCE DISORDER [None]
  - CORRECTIVE LENS USER [None]
  - DIARRHOEA [None]
  - DRY EYE [None]
  - FALL [None]
  - FATIGUE [None]
  - FEELING ABNORMAL [None]
  - HEADACHE [None]
  - INCREASED APPETITE [None]
  - LIVER DISORDER [None]
  - MALAISE [None]
  - NAUSEA [None]
  - OEDEMA PERIPHERAL [None]
  - PAIN [None]
  - RASH [None]
  - SOMNOLENCE [None]
  - VISION BLURRED [None]
  - WEIGHT DECREASED [None]
